FAERS Safety Report 18016003 (Version 1)
Quarter: 2020Q3

REPORT INFORMATION
  Report Type: Spontaneous
  Country: US (occurrence: US)
  Receive Date: 20200713
  Receipt Date: 20200713
  Transmission Date: 20201103
  Serious: No
  Sender: FDA-Public Use
  Company Number: NVSC2020US196818

PATIENT
  Age: 77 Year
  Sex: Female

DRUGS (1)
  1. VOLTAREN [Suspect]
     Active Substance: DICLOFENAC SODIUM
     Indication: PAIN
     Dosage: UNK, USED IT TWICE
     Route: 065
     Dates: start: 20200706, end: 20200707

REACTIONS (2)
  - Inappropriate schedule of product administration [Unknown]
  - Burning sensation [Unknown]

NARRATIVE: CASE EVENT DATE: 20200707
